FAERS Safety Report 7550692-3 (Version None)
Quarter: 2011Q2

REPORT INFORMATION
  Report Type: 
  Country: None (occurrence: None)
  Receive Date: 20110616
  Receipt Date: 20110609
  Transmission Date: 20111010
  Serious: Yes (Hospitalization)
  Sender: FDA-Public Use
  Company Number: IT-ELI_LILLY_AND_COMPANY-IT201106002501

PATIENT
  Sex: Male

DRUGS (5)
  1. IRBESARTAN AND HYDROCHLOROTHIAZIDE [Concomitant]
     Dosage: UNK
     Route: 048
  2. EMAGEL [Concomitant]
     Dosage: 3 DF, UNK
     Route: 051
  3. TENACID [Concomitant]
     Dosage: 500 MG, TID
     Route: 051
  4. HUMULIN R [Suspect]
     Indication: HYPERGLYCAEMIA
     Dosage: 100 IU, QD
     Route: 051
     Dates: start: 20110526
  5. ALIFLUS [Concomitant]
     Dosage: 2 DF, BID
     Route: 055

REACTIONS (1)
  - HYPERPYREXIA [None]
